FAERS Safety Report 8327794-7 (Version None)
Quarter: 2012Q2

REPORT INFORMATION
  Report Type: 
  Country: None (occurrence: None)
  Receive Date: 20120502
  Receipt Date: 20120424
  Transmission Date: 20120825
  Serious: No
  Sender: FDA-Public Use
  Company Number: US-PFIZER INC-2012103630

PATIENT
  Sex: Male

DRUGS (1)
  1. INLYTA [Suspect]
     Indication: RENAL CANCER
     Dosage: 5 MG, 2X/DAY (TAKE ONE TABLET 5 MG TWICE A DAY TOTAL DOSE 10 MG DAILY)
     Dates: start: 20120323

REACTIONS (1)
  - IMPAIRED HEALING [None]
